FAERS Safety Report 23720854 (Version 1)
Quarter: 2024Q2

REPORT INFORMATION
  Report Type: Other
  Country: US (occurrence: None)
  Receive Date: 20240409
  Receipt Date: 20240409
  Transmission Date: 20240716
  Serious: No
  Sender: FDA-Public Use
  Company Number: US-ROCHE-3538998

PATIENT
  Sex: Female

DRUGS (13)
  1. OCREVUS [Suspect]
     Active Substance: OCRELIZUMAB
     Indication: Multiple sclerosis
     Route: 042
  2. DIPHENHYDRAMINE [Concomitant]
     Active Substance: DIPHENHYDRAMINE
  3. METHYPREDNISOLONE SODIUM HEMISUCCINATE [Concomitant]
  4. SODIUM CHLORIDE [Concomitant]
     Active Substance: SODIUM CHLORIDE
  5. AMPYRA [Concomitant]
     Active Substance: DALFAMPRIDINE
  6. CATAPRES [Concomitant]
     Active Substance: CLONIDINE HYDROCHLORIDE
  7. ZANAFLEX [Concomitant]
     Active Substance: TIZANIDINE HYDROCHLORIDE
  8. ULTRAMOP [Concomitant]
  9. ZOFRAN [Concomitant]
     Active Substance: ONDANSETRON HYDROCHLORIDE
  10. VALTREX [Concomitant]
     Active Substance: VALACYCLOVIR HYDROCHLORIDE
  11. DEXAMETHASONE [Concomitant]
     Active Substance: DEXAMETHASONE
  12. CYANOCOBALAMIN [Concomitant]
     Active Substance: CYANOCOBALAMIN
  13. DOCONEXENT\ICOSAPENT [Concomitant]
     Active Substance: DOCONEXENT\ICOSAPENT

REACTIONS (14)
  - Acrochordon [Unknown]
  - Spinal cord injury [Unknown]
  - Palpitations [Unknown]
  - Peroneal nerve palsy [Unknown]
  - COVID-19 [Recovered/Resolved]
  - Neck pain [Recovered/Resolved]
  - Dermatitis bullous [Recovered/Resolved]
  - Muscular weakness [Recovered/Resolved]
  - Lumbar radiculopathy [Recovered/Resolved]
  - Post herpetic neuralgia [Recovered/Resolved]
  - Gait disturbance [Recovered/Resolved]
  - Paraesthesia [Recovered/Resolved]
  - Polymenorrhoea [Recovered/Resolved]
  - Vaginal infection [Recovered/Resolved]
